FAERS Safety Report 16715369 (Version 3)
Quarter: 2023Q2

REPORT INFORMATION
  Report Type: Spontaneous
  Country: US (occurrence: US)
  Receive Date: 20190819
  Receipt Date: 20230502
  Transmission Date: 20230722
  Serious: No
  Sender: FDA-Public Use
  Company Number: US-PFIZER INC-2019349616

PATIENT
  Age: 75 Year
  Sex: Female
  Weight: 61.224 kg

DRUGS (1)
  1. EXEMESTANE [Suspect]
     Active Substance: EXEMESTANE
     Dosage: UNK

REACTIONS (1)
  - Illness [Recovered/Resolved]
